FAERS Safety Report 25520357 (Version 2)
Quarter: 2025Q3

REPORT INFORMATION
  Report Type: Spontaneous
  Country: AU (occurrence: AU)
  Receive Date: 20250704
  Receipt Date: 20250730
  Transmission Date: 20251021
  Serious: Yes (Other)
  Sender: ALEXION PHARMACEUTICALS
  Company Number: AU-ASTRAZENECA-202506OCE024480AU

PATIENT
  Age: 38 Year
  Sex: Female

DRUGS (2)
  1. SOLIRIS [Suspect]
     Active Substance: ECULIZUMAB
     Route: 065
  2. ULTOMIRIS [Suspect]
     Active Substance: RAVULIZUMAB-CWVZ
     Route: 065

REACTIONS (7)
  - Atypical haemolytic uraemic syndrome [Unknown]
  - Angioedema [Unknown]
  - Thrombotic microangiopathy [Unknown]
  - Urticaria [Unknown]
  - Proteinuria [Unknown]
  - Abdominal pain upper [Unknown]
  - Nausea [Unknown]
